FAERS Safety Report 8156547-8 (Version None)
Quarter: 2012Q1

REPORT INFORMATION
  Report Type: 
  Country: None (occurrence: None)
  Receive Date: 20120222
  Receipt Date: 20120210
  Transmission Date: 20120608
  Serious: Yes (Hospitalization)
  Sender: FDA-Public Use
  Company Number: US-ACTELION-A-US2012-59437

PATIENT

DRUGS (2)
  1. REVATIO [Concomitant]
  2. TRACLEER [Suspect]
     Indication: PULMONARY HYPERTENSION
     Dosage: UNK MG, UNK
     Route: 048
     Dates: start: 20111110, end: 20120101

REACTIONS (4)
  - INTRACARDIAC THROMBUS [None]
  - HEART RATE INCREASED [None]
  - CARDIAC OPERATION [None]
  - CONDITION AGGRAVATED [None]
